FAERS Safety Report 4555671-6 (Version None)
Quarter: 2005Q1

REPORT INFORMATION
  Report Type: 
  Country: None (occurrence: None)
  Receive Date: 20050105
  Receipt Date: 20041118
  Transmission Date: 20050727
  Serious: No
  Sender: FDA-Public Use
  Company Number: SU-2004-002852

PATIENT
  Age: 60 Year
  Sex: Male
  Weight: 92.5338 kg

DRUGS (4)
  1. BENICAR HCT [Suspect]
     Indication: HYPERTENSION
     Dosage: 20.135 MG QD PO
     Route: 048
     Dates: start: 20040720, end: 20041001
  2. FLONASE [Concomitant]
  3. PREVACID [Concomitant]
  4. DEPO-TESTOSTERONE [Concomitant]

REACTIONS (2)
  - COLITIS [None]
  - DIARRHOEA [None]
